FAERS Safety Report 5096225-5 (Version None)
Quarter: 2006Q3

REPORT INFORMATION
  Report Type: 
  Country: None (occurrence: None)
  Receive Date: 20060831
  Receipt Date: 20060816
  Transmission Date: 20061208
  Serious: Yes (Hospitalization)
  Sender: FDA-Public Use
  Company Number: RENA-11890

PATIENT
  Age: 60 Year
  Sex: Female

DRUGS (1)
  1. RENAGEL [Suspect]
     Indication: HYPERPHOSPHATAEMIA
     Dosage: 10.4 G DAILY PO
     Route: 048
     Dates: start: 20060401

REACTIONS (3)
  - INFECTION [None]
  - THROMBOSIS [None]
  - URINARY BLADDER HAEMORRHAGE [None]
